FAERS Safety Report 12548157 (Version 2)
Quarter: 2016Q3

REPORT INFORMATION
  Report Type: Spontaneous
  Country: US (occurrence: US)
  Receive Date: 20160712
  Receipt Date: 20160927
  Transmission Date: 20161109
  Serious: No
  Sender: FDA-Public Use
  Company Number: US-PFIZER INC-2016303402

PATIENT
  Age: 49 Year
  Sex: Female
  Weight: 64 kg

DRUGS (2)
  1. ZOMETA [Concomitant]
     Active Substance: ZOLEDRONIC ACID
     Indication: BREAST CANCER METASTATIC
     Dosage: INFUSION, MONTHLY
     Dates: start: 2015
  2. IBRANCE [Suspect]
     Active Substance: PALBOCICLIB
     Indication: BREAST CANCER STAGE IV
     Dosage: 125 MG, 1X/DAY
     Route: 048
     Dates: start: 20160508, end: 20160528

REACTIONS (3)
  - Platelet count decreased [Recovering/Resolving]
  - White blood cell count decreased [Recovering/Resolving]
  - Neoplasm progression [Unknown]

NARRATIVE: CASE EVENT DATE: 20160603
